FAERS Safety Report 9305590 (Version 1)
Quarter: 2013Q1

REPORT INFORMATION
  Report Type: Spontaneous
  Country: JP (occurrence: None)
  Receive Date: 20130104
  Receipt Date: 20130104
  Transmission Date: 20140127
  Serious: No
  Sender: FDA-Public Use
  Company Number: SPI201200427

PATIENT
  Age: 52 Year
  Sex: Female

DRUGS (1)
  1. AMITIZA (LUBIPROSTONE) CAPSULE, 24MCG [Suspect]
     Indication: CONSTIPATION
     Route: 048
     Dates: start: 20121128, end: 20121128

REACTIONS (3)
  - Dyspnoea [None]
  - Choking sensation [None]
  - Cough [None]
